FAERS Safety Report 8044757-X (Version None)
Quarter: 2012Q1

REPORT INFORMATION
  Report Type: 
  Country: None (occurrence: None)
  Receive Date: 20120113
  Receipt Date: 20120109
  Transmission Date: 20120608
  Serious: Yes (Death, Other)
  Sender: FDA-Public Use
  Company Number: CA-ELI_LILLY_AND_COMPANY-CA201201002309

PATIENT
  Age: 41 Year
  Sex: Female

DRUGS (7)
  1. CYMBALTA [Suspect]
     Dosage: UNK, UNKNOWN
  2. TEMAZEPAM [Concomitant]
  3. COCAINE [Concomitant]
  4. LORAZEPAM [Concomitant]
  5. OXYCONTIN [Concomitant]
     Dosage: 40 MG, UNKNOWN
  6. CYCLOBENZAPRINE [Concomitant]
  7. QUETIAPINE [Concomitant]

REACTIONS (5)
  - TOXICITY TO VARIOUS AGENTS [None]
  - UNRESPONSIVE TO STIMULI [None]
  - OVERDOSE [None]
  - LOSS OF CONSCIOUSNESS [None]
  - MULTI-ORGAN FAILURE [None]
